FAERS Safety Report 15456209 (Version 1)
Quarter: 2018Q4

REPORT INFORMATION
  Report Type: Spontaneous
  Country: DE (occurrence: DE)
  Receive Date: 20181002
  Receipt Date: 20181002
  Transmission Date: 20190204
  Serious: Yes (Other)
  Sender: FDA-Public Use
  Company Number: DE-TEVA-2018-DE-956830

PATIENT
  Age: 75 Year
  Sex: Female

DRUGS (3)
  1. PREDNISOLON [Concomitant]
     Active Substance: PREDNISOLONE
     Dosage: 5 MILLIGRAM DAILY;
     Route: 048
  2. VALSARTAN DURA 80 MG [Interacting]
     Active Substance: VALSARTAN
     Dosage: 40 MILLIGRAM DAILY; INTAKE IN THE MORNING
     Route: 048
  3. BISOPROLOL-RATIOPHARM 5 MG TABLETTEN [Suspect]
     Active Substance: BISOPROLOL
     Dosage: 5 MILLIGRAM DAILY; INTAKE IN THE MORNING
     Route: 048

REACTIONS (4)
  - Heart rate increased [Unknown]
  - Arrhythmia [Unknown]
  - Drug interaction [Unknown]
  - Palpitations [Unknown]
